FAERS Safety Report 8810456 (Version 4)
Quarter: 2013Q1

REPORT INFORMATION
  Report Type: Spontaneous
  Country: US (occurrence: US)
  Receive Date: 20120927
  Receipt Date: 20130319
  Transmission Date: 20140127
  Serious: Yes (Death, Hospitalization, Disabling, Other)
  Sender: FDA-Public Use
  Company Number: US-009507513-1208USA007490

PATIENT
  Sex: Female

DRUGS (7)
  1. FOSAMAX [Suspect]
     Indication: OSTEOPOROSIS
     Dosage: 70 MG, QW
     Route: 048
     Dates: start: 200210, end: 20110527
  2. FOSAMAX [Suspect]
     Indication: OSTEOPENIA
  3. FOSAMAX PLUS D [Suspect]
     Indication: OSTEOPOROSIS
     Dosage: 70/2800 IU, UNK
     Route: 048
     Dates: start: 200707, end: 201106
  4. LOVAZA [Concomitant]
     Indication: HYPERCHOLESTEROLAEMIA
     Dosage: 2 G, BID
     Route: 048
  5. ADVICOR [Concomitant]
     Indication: HYPERCHOLESTEROLAEMIA
     Dosage: 500-20 MG, 2 TAB, HS
     Route: 048
  6. GLYBURIDE [Concomitant]
     Indication: DIABETES MELLITUS
     Dosage: 5 MG, BID
     Route: 048
  7. JANUMET [Concomitant]
     Indication: DIABETES MELLITUS
     Dosage: 50-1000 MG, AS DIRECTED, BID
     Route: 048

REACTIONS (17)
  - Arteriosclerosis [Fatal]
  - Internal fixation of fracture [Unknown]
  - Anaemia postoperative [Unknown]
  - Transfusion [Unknown]
  - Low turnover osteopathy [Not Recovered/Not Resolved]
  - Renal failure chronic [Not Recovered/Not Resolved]
  - Fall [Unknown]
  - Femur fracture [Not Recovered/Not Resolved]
  - Blood potassium decreased [Unknown]
  - Hypertension [Unknown]
  - Osteoarthritis [Unknown]
  - Blood glucose increased [Unknown]
  - Constipation [Unknown]
  - Pain in extremity [Unknown]
  - Gastrooesophageal reflux disease [Unknown]
  - Vomiting [Unknown]
  - Nausea [Unknown]
